FAERS Safety Report 13105883 (Version 1)
Quarter: 2017Q1

REPORT INFORMATION
  Report Type: Spontaneous
  Country: IT (occurrence: IT)
  Receive Date: 20170111
  Receipt Date: 20170111
  Transmission Date: 20170428
  Serious: Yes (Hospitalization)
  Sender: FDA-Public Use
  Company Number: IT-BAYER-2017-005089

PATIENT
  Age: 61 Year
  Sex: Male

DRUGS (8)
  1. CARDIOASPIRIN 100 MG [Suspect]
     Active Substance: ASPIRIN
     Dosage: 100 MG, QD
     Route: 048
  2. EUTIROX [Concomitant]
     Active Substance: LEVOTHYROXINE SODIUM
     Dosage: UNK
  3. EUTIROX [Concomitant]
     Active Substance: LEVOTHYROXINE SODIUM
     Dosage: UNK
  4. MIMPARA [CINACALCET HYDROCHLORIDE] [Concomitant]
     Active Substance: CINACALCET HYDROCHLORIDE
     Dosage: DAILY DOSE 30 MG
     Route: 048
  5. GLURENOR [Concomitant]
     Active Substance: GLIQUIDONE
     Dosage: DAILY DOSE 30 MG
     Route: 048
  6. LASIX [Concomitant]
     Active Substance: FUROSEMIDE
     Dosage: DAILY DOSE 250 MG
     Route: 048
  7. CARVEDILOL. [Concomitant]
     Active Substance: CARVEDILOL
     Dosage: DAILY DOSE 25 MG
     Route: 048
  8. RENVELA [Concomitant]
     Active Substance: SEVELAMER CARBONATE
     Dosage: DAILY DOSE 4.8 G
     Route: 048

REACTIONS (3)
  - Asthenia [Recovered/Resolved]
  - Melaena [Recovered/Resolved]
  - Retching [Recovered/Resolved]

NARRATIVE: CASE EVENT DATE: 20161111
